FAERS Safety Report 21718280 (Version 3)
Quarter: 2023Q4

REPORT INFORMATION
  Report Type: Spontaneous
  Country: PL (occurrence: PL)
  Receive Date: 20221212
  Receipt Date: 20231010
  Transmission Date: 20240110
  Serious: Yes (Other)
  Sender: FDA-Public Use
  Company Number: PL-GILEAD-2022-0608696

PATIENT
  Age: 70 Year
  Sex: Male

DRUGS (4)
  1. BIKTARVY [Suspect]
     Active Substance: BICTEGRAVIR SODIUM\EMTRICITABINE\TENOFOVIR ALAFENAMIDE FUMARATE
     Indication: HIV infection
     Dosage: UNK
     Route: 065
  2. ASPIRIN [Concomitant]
     Active Substance: ASPIRIN
  3. ISONIAZID [Concomitant]
     Active Substance: ISONIAZID
  4. MIANSERIN [Concomitant]
     Active Substance: MIANSERIN

REACTIONS (2)
  - Pneumonitis [Recovering/Resolving]
  - Acute myocardial infarction [Recovering/Resolving]
